FAERS Safety Report 5230012-X (Version None)
Quarter: 2007Q1

REPORT INFORMATION
  Report Type: 
  Country: None (occurrence: None)
  Receive Date: 20070206
  Receipt Date: 20060907
  Transmission Date: 20070707
  Serious: No
  Sender: FDA-Public Use
  Company Number: US-GLAXOSMITHKLINE-A0618476A

PATIENT
  Sex: Female

DRUGS (1)
  1. PAXIL [Suspect]
     Indication: HYPERSENSITIVITY
     Route: 048

REACTIONS (2)
  - HYPOAESTHESIA FACIAL [None]
  - PARAESTHESIA [None]
